FAERS Safety Report 4787852-0 (Version None)
Quarter: 2005Q3

REPORT INFORMATION
  Report Type: 
  Country: None (occurrence: None)
  Receive Date: 20050926
  Receipt Date: 20050726
  Transmission Date: 20060218
  Serious: Yes (Death, Life-Threatening)
  Sender: FDA-Public Use
  Company Number: 216240

PATIENT
  Age: 53 Year
  Sex: Female
  Weight: 112.9 kg

DRUGS (3)
  1. AVASTIN [Suspect]
     Indication: OVARIAN CANCER
     Dosage: 1100 MG, INTRAVENOUS
     Route: 042
     Dates: start: 20050714, end: 20050714
  2. CYTOXAN [Concomitant]
  3. TOPOTECAN (TOPOTECAN HYDROCHLORIDE) [Concomitant]

REACTIONS (2)
  - CEREBELLAR HAEMORRHAGE [None]
  - OVARIAN CANCER [None]
